FAERS Safety Report 13127324 (Version 1)
Quarter: 2017Q1

REPORT INFORMATION
  Report Type: Report from Study
  Country: US (occurrence: US)
  Receive Date: 20170118
  Receipt Date: 20170118
  Transmission Date: 20170428
  Serious: Yes (Death)
  Sender: FDA-Public Use
  Company Number: US-ACTELION-A-US2017-148584

PATIENT
  Age: 77 Year
  Sex: Female

DRUGS (11)
  1. AMLODIPINE [Concomitant]
     Active Substance: AMLODIPINE BESYLATE
  2. SILDENAFIL. [Concomitant]
     Active Substance: SILDENAFIL
  3. POTASSIUM CHLORIDE. [Concomitant]
     Active Substance: POTASSIUM CHLORIDE
  4. GLIPIZIDE. [Concomitant]
     Active Substance: GLIPIZIDE
  5. VITAMIN D [Concomitant]
     Active Substance: CHOLECALCIFEROL
  6. TORSEMIDE. [Concomitant]
     Active Substance: TORSEMIDE
  7. FLAXSEED [Concomitant]
     Active Substance: FLAX SEED
  8. TRACLEER [Suspect]
     Active Substance: BOSENTAN
     Indication: PULMONARY ARTERIAL HYPERTENSION
     Dosage: 125 MG, BID
     Route: 048
     Dates: start: 20161005, end: 20161224
  9. ASPIRIN. [Concomitant]
     Active Substance: ASPIRIN
  10. COREG [Concomitant]
     Active Substance: CARVEDILOL
  11. CALCITROL [Concomitant]
     Active Substance: CALCITRIOL

REACTIONS (1)
  - Death [Fatal]

NARRATIVE: CASE EVENT DATE: 20161224
